FAERS Safety Report 10438031 (Version 2)
Quarter: 2014Q3

REPORT INFORMATION
  Report Type: Spontaneous
  Country: US (occurrence: US)
  Receive Date: 20140908
  Receipt Date: 20140908
  Transmission Date: 20150326
  Serious: No
  Sender: FDA-Public Use
  Company Number: US-BRISTOL-MYERS SQUIBB COMPANY-19833631

PATIENT
  Age: 35 Year
  Sex: Female
  Weight: 47.62 kg

DRUGS (2)
  1. ABILIFY [Suspect]
     Active Substance: ARIPIPRAZOLE
     Indication: ATTENTION DEFICIT/HYPERACTIVITY DISORDER
     Dosage: 1DF= 1/2 TAB DAILY?LAST DOSE: 11-NOV-2013
     Route: 048
     Dates: start: 20131029, end: 20131111
  2. ABILIFY [Suspect]
     Active Substance: ARIPIPRAZOLE
     Indication: BIPOLAR DISORDER
     Dosage: 1DF= 1/2 TAB DAILY?LAST DOSE: 11-NOV-2013
     Route: 048
     Dates: start: 20131029, end: 20131111

REACTIONS (2)
  - Wrong technique in drug usage process [Recovered/Resolved]
  - Hallucination, auditory [Recovered/Resolved]

NARRATIVE: CASE EVENT DATE: 20131029
